FAERS Safety Report 8874449 (Version 2)
Quarter: 2012Q4

REPORT INFORMATION
  Report Type: 
  Country: US (occurrence: US)
  Receive Date: 20121023
  Receipt Date: 20121106
  Transmission Date: 20130627
  Serious: No
  Sender: FDA-Public Use
  Company Number: US-VERTEX PHARMACEUTICAL INC.-2012-023255

PATIENT
  Age: 48 Year
  Sex: Female
  Weight: 73 kg

DRUGS (15)
  1. VX-950 [Suspect]
     Indication: HEPATITIS C
     Dosage: 750 mg, tid
     Route: 048
  2. RIBAVIRIN [Suspect]
     Indication: HEPATITIS C
     Dosage: 200 mg, UNK
  3. PEGASYS [Suspect]
     Indication: HEPATITIS C
     Dosage: 180 ?g, UNK
  4. LISINOPRIL [Concomitant]
     Dosage: 20 mg, UNK
  5. CONCERTA [Concomitant]
     Dosage: 18 mg, UNK
  6. PREDNISONE [Concomitant]
     Dosage: 10 mg, UNK
  7. NEXIUM                             /01479302/ [Concomitant]
     Dosage: 20 mg, UNK
  8. MAXZIDE [Concomitant]
     Dosage: UNK
  9. CALCIUM [Concomitant]
     Dosage: 1200 UNK, UNK
  10. MULTIVI VIT TAB ESSENT [Concomitant]
  11. ACIDOPHILUS [Concomitant]
  12. VITAMIN C/ ACEROL [Concomitant]
     Dosage: 500 mg, UNK
  13. FISH OIL [Concomitant]
  14. OMEGA 3                            /01334101/ [Concomitant]
     Dosage: 1000 mg, UNK
  15. ADVAIR DISKU [Concomitant]
     Dosage: 100/ 50

REACTIONS (5)
  - Insomnia [Unknown]
  - Headache [Unknown]
  - Fatigue [Unknown]
  - Rash generalised [Unknown]
  - Nausea [Unknown]
